FAERS Safety Report 4966108-7 (Version None)
Quarter: 2006Q2

REPORT INFORMATION
  Report Type: 
  Country: None (occurrence: None)
  Receive Date: 20060403
  Receipt Date: 20060321
  Transmission Date: 20061013
  Serious: Yes (Other)
  Sender: FDA-Public Use
  Company Number: 2006018860

PATIENT
  Age: 67 Year
  Sex: Female

DRUGS (3)
  1. ZYVOX [Suspect]
     Indication: OSTEOARTHRITIS
     Dosage: 1200 MG (2 IN 1 D), ORAL
     Route: 048
     Dates: start: 20060112, end: 20060126
  2. RIFAMPICIN [Suspect]
     Indication: OSTEOARTHRITIS
     Dosage: 900 MG, ORAL
     Route: 048
     Dates: start: 20060112, end: 20060126
  3. TEICOPLANIN [Concomitant]

REACTIONS (1)
  - PANCREATITIS ACUTE [None]
